FAERS Safety Report 13436425 (Version 1)
Quarter: 2017Q2

REPORT INFORMATION
  Report Type: Spontaneous
  Country: US (occurrence: US)
  Receive Date: 20170412
  Receipt Date: 20170412
  Transmission Date: 20170830
  Serious: Yes (Hospitalization)
  Sender: FDA-Public Use
  Company Number: None

PATIENT
  Age: 78 Year
  Sex: Female

DRUGS (1)
  1. IBRANCE [Suspect]
     Active Substance: PALBOCICLIB
     Dosage: 100MG DAILY FOR 21 DAYS THEN OFF FOR 7 DAYS BY MOUTH
     Route: 048
     Dates: start: 20161126

REACTIONS (3)
  - Fatigue [None]
  - Dyspnoea [None]
  - Eating disorder [None]

NARRATIVE: CASE EVENT DATE: 20170409
